FAERS Safety Report 4450572-6 (Version None)
Quarter: 2004Q3

REPORT INFORMATION
  Report Type: 
  Country: None (occurrence: None)
  Receive Date: 20040915
  Receipt Date: 20040830
  Transmission Date: 20050211
  Serious: Yes (Hospitalization)
  Sender: FDA-Public Use
  Company Number: 04P-163-0271835-00

PATIENT
  Age: 54 Year
  Sex: Male
  Weight: 90.7194 kg

DRUGS (13)
  1. HUMIRA [Suspect]
     Indication: RHEUMATOID ARTHRITIS
     Dosage: 40 MG, 1 IN 2 WK, SUBCUTANEOUS
     Route: 058
     Dates: start: 20040401
  2. AZATHIOPRINE [Concomitant]
  3. SULFASALAZINE [Concomitant]
  4. MESALAMINE [Concomitant]
  5. PREDNISONE [Concomitant]
  6. FOLIC ACID [Concomitant]
  7. GABAPENTIN [Concomitant]
  8. FLOMAX [Concomitant]
  9. HYDRALAZINE HCL [Concomitant]
  10. TIZANIDINE HYDROCHLORIDE [Concomitant]
  11. OXYCONTIN [Concomitant]
  12. MORPHINE [Concomitant]
  13. FENTANYL [Concomitant]

REACTIONS (5)
  - CONDITION AGGRAVATED [None]
  - CROHN'S DISEASE [None]
  - OROPHARYNGEAL SWELLING [None]
  - RENAL FAILURE [None]
  - WEIGHT DECREASED [None]
